FAERS Safety Report 7625871-7 (Version None)
Quarter: 2011Q3

REPORT INFORMATION
  Report Type: 
  Country: None (occurrence: None)
  Receive Date: 20110721
  Receipt Date: 20110712
  Transmission Date: 20111222
  Serious: Yes (Hospitalization, Other)
  Sender: FDA-Public Use
  Company Number: JP-JNJFOC-20090903204

PATIENT
  Sex: Male
  Weight: 73 kg

DRUGS (46)
  1. ISONIAZID [Concomitant]
     Indication: ANTIBIOTIC PROPHYLAXIS
     Route: 048
     Dates: start: 20070730, end: 20070801
  2. SEISHOKU [Concomitant]
     Route: 041
     Dates: start: 20070720, end: 20070722
  3. LASIX [Concomitant]
     Indication: OEDEMA
     Route: 042
     Dates: start: 20070724, end: 20070730
  4. MYSER [Concomitant]
     Indication: RASH
     Dosage: P.R.N
     Route: 061
     Dates: start: 20070802, end: 20070815
  5. SOLU-CORTEF [Concomitant]
     Route: 041
     Dates: start: 20070801, end: 20070813
  6. FLUCONAZOLE [Concomitant]
     Indication: ANTIBIOTIC PROPHYLAXIS
     Route: 048
     Dates: start: 20070730, end: 20070801
  7. SULFAMETHOXAZOLE [Concomitant]
     Indication: FUNGAL INFECTION
     Route: 048
     Dates: start: 20070730, end: 20070801
  8. AMIKACIN SULFATE [Concomitant]
     Indication: TONSILLAR INFLAMMATION
     Route: 041
     Dates: start: 20070719, end: 20070724
  9. FLURBIPROFEN [Concomitant]
     Indication: ANALGESIC THERAPY
     Dosage: P.R.N
     Route: 041
     Dates: start: 20070719, end: 20070720
  10. SEISHOKU [Concomitant]
     Indication: ANTIPYRESIS
     Route: 041
     Dates: start: 20070719, end: 20070720
  11. SEISHOKU [Concomitant]
     Dosage: 1 D.F- 4 D.F P.R.N
     Route: 041
     Dates: start: 20070719, end: 20070731
  12. SEISHOKU [Concomitant]
     Indication: ANALGESIC THERAPY
     Route: 041
     Dates: start: 20070719, end: 20070720
  13. SOLU-CORTEF [Concomitant]
     Indication: ANTIPYRESIS
     Route: 041
     Dates: start: 20070719, end: 20070731
  14. FLUCONAZOLE [Concomitant]
     Indication: PNEUMOCYSTIS JIROVECI PNEUMONIA
     Route: 048
     Dates: start: 20070730, end: 20070801
  15. PENTCILLIN [Concomitant]
     Indication: TONSILLAR INFLAMMATION
     Route: 041
     Dates: start: 20070719, end: 20070719
  16. SEISHOKU [Concomitant]
     Indication: MEDICATION DILUTION
     Dosage: 1 D.F- 4 D.F P.R.N
     Route: 041
     Dates: start: 20070719, end: 20070731
  17. SEISHOKU [Concomitant]
     Route: 041
     Dates: start: 20070720, end: 20070722
  18. SEISHOKU [Concomitant]
     Route: 041
     Dates: start: 20070720, end: 20070722
  19. RAMELTEON [Concomitant]
     Indication: PROPHYLAXIS OF NAUSEA AND VOMITING
     Route: 041
     Dates: start: 20070720, end: 20070726
  20. ISONIAZID [Concomitant]
     Indication: PNEUMOCYSTIS JIROVECI PNEUMONIA
     Route: 048
     Dates: start: 20070730, end: 20070801
  21. CLIDAMACIN [Concomitant]
     Indication: TONSILLAR INFLAMMATION
     Route: 041
     Dates: start: 20070725, end: 20070730
  22. TIENAM [Concomitant]
     Indication: TONSILLAR INFLAMMATION
     Route: 041
     Dates: start: 20070728, end: 20070730
  23. SEISHOKU [Concomitant]
     Dosage: 1 D.F- 4 D.F P.R.N
     Route: 041
     Dates: start: 20070719, end: 20070731
  24. UNKNOWN MEDICATION [Concomitant]
     Indication: ANALGESIC THERAPY
     Route: 041
     Dates: start: 20070720, end: 20070722
  25. SOLU-CORTEF [Concomitant]
     Indication: ANALGESIC THERAPY
     Route: 041
     Dates: start: 20070801, end: 20070813
  26. LOXONIN [Concomitant]
     Indication: ANALGESIC THERAPY
     Dosage: 60 MG- 180 MG P.R.N
     Route: 048
     Dates: start: 20070717, end: 20070718
  27. SEISHOKU [Concomitant]
     Route: 041
     Dates: start: 20070719, end: 20070720
  28. METILON [Concomitant]
     Indication: ANTIPYRESIS
     Dosage: 2- 4 A P.R.N
     Route: 041
     Dates: start: 20070719, end: 20070731
  29. LEVOFLOXACIN [Concomitant]
     Indication: TONSILLAR INFLAMMATION
     Route: 048
     Dates: start: 20070730, end: 20070801
  30. LEUSTATIN [Suspect]
     Indication: HAIRY CELL LEUKAEMIA
     Route: 041
     Dates: start: 20070720, end: 20070727
  31. SULFAMETHOXAZOLE [Concomitant]
     Indication: PNEUMOCYSTIS JIROVECI PNEUMONIA
     Route: 048
     Dates: start: 20070730, end: 20070801
  32. ZITHROMAX [Concomitant]
     Indication: TONSILLAR INFLAMMATION
     Route: 048
     Dates: start: 20070718, end: 20070720
  33. METILON [Concomitant]
     Indication: ANALGESIC THERAPY
     Dosage: 2- 4 A P.R.N
     Route: 041
     Dates: start: 20070719, end: 20070731
  34. FAMOTIDINE [Concomitant]
     Indication: PROPHYLAXIS AGAINST GASTROINTESTINAL ULCER
     Route: 041
     Dates: start: 20070719, end: 20070806
  35. SOLU-CORTEF [Concomitant]
     Route: 041
     Dates: start: 20070719, end: 20070731
  36. SULFAMETHOXAZOLE [Concomitant]
     Indication: ANTIFUNGAL PROPHYLAXIS
     Route: 048
     Dates: start: 20070730, end: 20070801
  37. ISONIAZID [Concomitant]
     Indication: FUNGAL INFECTION
     Route: 048
     Dates: start: 20070730, end: 20070801
  38. PIPERACILLIN AND TAZOBACTAM [Concomitant]
     Indication: TONSILLAR INFLAMMATION
     Route: 041
     Dates: start: 20070719, end: 20070727
  39. OLOPATADINE HCL [Concomitant]
     Indication: ILL-DEFINED DISORDER
     Route: 048
     Dates: start: 20070802, end: 20070827
  40. FLUCONAZOLE [Concomitant]
     Indication: FUNGAL INFECTION
     Route: 048
     Dates: start: 20070730, end: 20070801
  41. SULFAMETHOXAZOLE [Concomitant]
     Indication: ANTIBIOTIC PROPHYLAXIS
     Route: 048
     Dates: start: 20070730, end: 20070801
  42. POLARAMINE [Concomitant]
     Route: 041
     Dates: start: 20070801, end: 20070813
  43. NEUTROGIN [Concomitant]
     Route: 041
     Dates: start: 20070728, end: 20070806
  44. AUGMENTIN '125' [Concomitant]
     Indication: TONSILLAR INFLAMMATION
     Route: 048
     Dates: start: 20070822, end: 20080710
  45. AUGMENTIN '125' [Concomitant]
     Route: 048
     Dates: start: 20070730, end: 20070801
  46. PENTAZOCINE LACTATE [Concomitant]
     Indication: ANALGESIC THERAPY
     Route: 041
     Dates: start: 20070720, end: 20070722

REACTIONS (11)
  - LEUKOPENIA [None]
  - EOSINOPHILIA [None]
  - OEDEMA [None]
  - LYMPHOCYTE COUNT DECREASED [None]
  - EOSINOPHIL COUNT INCREASED [None]
  - BLOOD ALBUMIN DECREASED [None]
  - GAMMA-GLUTAMYLTRANSFERASE INCREASED [None]
  - ALANINE AMINOTRANSFERASE INCREASED [None]
  - MONOCYTE COUNT INCREASED [None]
  - RASH [None]
  - BLOOD POTASSIUM DECREASED [None]
